FAERS Safety Report 8089210-2 (Version None)
Quarter: 2012Q1

REPORT INFORMATION
  Report Type: 
  Country: None (occurrence: None)
  Receive Date: 20120128
  Receipt Date: 20110624
  Transmission Date: 20120608
  Serious: No
  Sender: FDA-Public Use
  Company Number: US-ABBOTT-11P-163-0733049-00

PATIENT
  Sex: Female

DRUGS (4)
  1. HUMIRA [Suspect]
     Indication: CROHN'S DISEASE
     Route: 058
     Dates: start: 20110401
  2. VIACTIV [Concomitant]
     Indication: VITAMIN SUPPLEMENTATION
     Dosage: WITH VIT D
  3. ESTRADIOL [Concomitant]
     Indication: HYSTERECTOMY
     Dosage: PATCH DAILY
  4. HYDROCHLOROTHIAZIDE [Concomitant]
     Indication: HYPERTENSION
     Dosage: 25MG DAILY

REACTIONS (4)
  - RASH [None]
  - FUNGAL INFECTION [None]
  - PRURITUS [None]
  - URTICARIA [None]
